FAERS Safety Report 24022238 (Version 2)
Quarter: 2024Q3

REPORT INFORMATION
  Report Type: Report from Study
  Country: ZA (occurrence: ZA)
  Receive Date: 20240627
  Receipt Date: 20240710
  Transmission Date: 20241016
  Serious: No
  Sender: ROCHE
  Company Number: ZA-ROCHE-3549621

PATIENT
  Sex: Female

DRUGS (1)
  1. VABYSMO [Suspect]
     Active Substance: FARICIMAB\FARICIMAB-SVOA
     Indication: Macular degeneration
     Dosage: RIGHT EYE, 19/MAR/2024 LEFT EYE. ON 12/APR/2024, TOOK THE NEXT DOSE OF FARICIMAB BILATERALLY.
     Route: 050
     Dates: start: 20240315

REACTIONS (2)
  - Inappropriate schedule of product administration [Unknown]
  - No adverse event [Unknown]
